FAERS Safety Report 14691431 (Version 4)
Quarter: 2019Q2

REPORT INFORMATION
  Report Type: Spontaneous
  Country: US (occurrence: US)
  Receive Date: 20180328
  Receipt Date: 20190415
  Transmission Date: 20190711
  Serious: Yes (Other)
  Sender: FDA-Public Use
  Company Number: US-ASTRAZENECA-2018SE37553

PATIENT
  Age: 18230 Day
  Sex: Female
  Weight: 103.9 kg

DRUGS (12)
  1. LISINOPRIL. [Concomitant]
     Active Substance: LISINOPRIL
  2. SERZONE [Concomitant]
     Active Substance: NEFAZODONE HYDROCHLORIDE
  3. NEXIUM [Suspect]
     Active Substance: ESOMEPRAZOLE MAGNESIUM
     Indication: GASTROOESOPHAGEAL REFLUX DISEASE
     Route: 048
     Dates: start: 20050212, end: 200912
  4. PRAVASTATIN. [Concomitant]
     Active Substance: PRAVASTATIN
  5. TEGRETOL XR [Concomitant]
     Active Substance: CARBAMAZEPINE
  6. CRESTOR [Concomitant]
     Active Substance: ROSUVASTATIN CALCIUM
  7. NEXIUM [Suspect]
     Active Substance: ESOMEPRAZOLE MAGNESIUM
     Indication: GASTROOESOPHAGEAL REFLUX DISEASE
     Route: 048
     Dates: start: 20050212, end: 20091231
  8. PEPCID [Concomitant]
     Active Substance: FAMOTIDINE
  9. HEPARIN [Concomitant]
     Active Substance: HEPARIN SODIUM
  10. CYTOMEL [Concomitant]
     Active Substance: LIOTHYRONINE SODIUM
  11. LOPRESSOR [Concomitant]
     Active Substance: METOPROLOL TARTRATE
  12. NITROGLYCERIN. [Concomitant]
     Active Substance: NITROGLYCERIN

REACTIONS (7)
  - Renal failure [Unknown]
  - Nephrogenic anaemia [Unknown]
  - Hyperparathyroidism secondary [Unknown]
  - Renal injury [Unknown]
  - End stage renal disease [Unknown]
  - Acute kidney injury [Not Recovered/Not Resolved]
  - Chronic kidney disease [Not Recovered/Not Resolved]

NARRATIVE: CASE EVENT DATE: 20090820
